FAERS Safety Report 6571416-2 (Version None)
Quarter: 2010Q1

REPORT INFORMATION
  Report Type: 
  Country: None (occurrence: None)
  Receive Date: 20100205
  Receipt Date: 20100128
  Transmission Date: 20100710
  Serious: Yes (Other)
  Sender: FDA-Public Use
  Company Number: US-PFIZER INC-2010013688

PATIENT
  Sex: Male
  Weight: 113.38 kg

DRUGS (3)
  1. GLIPIZIDE [Suspect]
     Indication: HYPERGLYCAEMIA
     Dosage: 2.5 MG, 2X/DAY
     Route: 048
     Dates: start: 20100119, end: 20100121
  2. GLIPIZIDE [Suspect]
     Indication: BLOOD GLUCOSE INCREASED
  3. METFORMIN [Concomitant]

REACTIONS (2)
  - VISION BLURRED [None]
  - VISUAL IMPAIRMENT [None]
